FAERS Safety Report 17276855 (Version 3)
Quarter: 2020Q3

REPORT INFORMATION
  Report Type: Spontaneous
  Country: US (occurrence: US)
  Receive Date: 20200116
  Receipt Date: 20200729
  Transmission Date: 20201102
  Serious: No
  Sender: FDA-Public Use
  Company Number: US-PFIZER INC-2020019623

PATIENT
  Age: 63 Year
  Sex: Male

DRUGS (2)
  1. PREDNISONE. [Concomitant]
     Active Substance: PREDNISONE
     Dosage: UNK
  2. XELJANZ [Suspect]
     Active Substance: TOFACITINIB CITRATE
     Indication: RHEUMATOID ARTHRITIS
     Dosage: 5 MG, 2X/DAY
     Route: 048
     Dates: start: 201910

REACTIONS (8)
  - Asthenia [Unknown]
  - White blood cell count increased [Unknown]
  - Dry mouth [Unknown]
  - Pain [Unknown]
  - Decreased appetite [Unknown]
  - Dizziness [Unknown]
  - Vein disorder [Unknown]
  - Dyspnoea [Unknown]
